FAERS Safety Report 4348382-3 (Version None)
Quarter: 2004Q2

REPORT INFORMATION
  Report Type: 
  Country: None (occurrence: None)
  Receive Date: 20040422
  Receipt Date: 20040406
  Transmission Date: 20050107
  Serious: Yes (Hospitalization)
  Sender: FDA-Public Use
  Company Number: JP_040402938

PATIENT
  Age: 75 Year
  Sex: Female

DRUGS (7)
  1. PERMAX [Suspect]
     Indication: PARKINSON'S DISEASE
     Dosage: 4 DSG FORM DAY
  2. CARBIDOPA AND LEVODOPA [Concomitant]
  3. PRIMPERAN TAB [Concomitant]
  4. NAUZELIN (DOMPERIDONE) [Concomitant]
  5. SELEGILINE HYDROCHLORIDE [Concomitant]
  6. DOMIN (TALIPEXOLE HYDROCHLORIDE) [Concomitant]
  7. MUCOSTA (REBAMIPIDE) [Concomitant]

REACTIONS (5)
  - BLOOD ALBUMIN ABNORMAL [None]
  - BLOOD CREATINE PHOSPHOKINASE INCREASED [None]
  - BLOOD POTASSIUM DECREASED [None]
  - HYPONATRAEMIA [None]
  - NAUSEA [None]
